FAERS Safety Report 8727104 (Version 1)
Quarter: 2012Q4

REPORT INFORMATION
  Report Type: 
  Country: US (occurrence: US)
  Receive Date: 20120910
  Receipt Date: 20120910
  Transmission Date: 20130627
  Serious: Yes (Other)
  Sender: FDA-Public Use
  Company Number: US-ROCHE-1101205

PATIENT
  Age: 34 Year
  Sex: Male

DRUGS (4)
  1. ACTIVASE [Suspect]
     Indication: ANGINA UNSTABLE
     Route: 042
  2. HEPARIN [Concomitant]
     Route: 040
  3. LIDOCAINE [Concomitant]
     Route: 042
  4. LIDOCAINE [Concomitant]
     Route: 042

REACTIONS (1)
  - Ventricular extrasystoles [Unknown]
